FAERS Safety Report 19229425 (Version 3)
Quarter: 2021Q2

REPORT INFORMATION
  Report Type: Report from Study
  Country: CA (occurrence: CA)
  Receive Date: 20210506
  Receipt Date: 20210621
  Transmission Date: 20210717
  Serious: Yes (Death)
  Sender: FDA-Public Use
  Company Number: CA-HLS-202107433

PATIENT
  Age: 78 Year
  Sex: Male

DRUGS (6)
  1. FLORINEF ACETATE [Concomitant]
     Active Substance: FLUDROCORTISONE ACETATE
     Indication: PRODUCT USED FOR UNKNOWN INDICATION
     Route: 048
  2. CLOZARIL [Suspect]
     Active Substance: CLOZAPINE
     Indication: PSYCHOTIC DISORDER
     Dosage: 25 MG QAM AND 37.5 MG AT BEDTIME
     Route: 048
     Dates: start: 20120813, end: 20210415
  3. CARBIDOPA AND LEVODOPA [Concomitant]
     Active Substance: CARBIDOPA\LEVODOPA
     Indication: PRODUCT USED FOR UNKNOWN INDICATION
     Dosage: 100/25 MG , 2.5 TAB ? 6 TIMES PER DAY
     Route: 048
  4. CLOZARIL [Suspect]
     Active Substance: CLOZAPINE
     Indication: PARKINSON^S DISEASE
     Dosage: 25 MG QAM AND 37.5 MG AT BEDTIME
     Route: 048
     Dates: start: 20120813, end: 20210415
  5. MIDODRINE [Concomitant]
     Active Substance: MIDODRINE
     Indication: PRODUCT USED FOR UNKNOWN INDICATION
     Route: 065
  6. SINEMET CR [Concomitant]
     Active Substance: CARBIDOPA\LEVODOPA
     Indication: PRODUCT USED FOR UNKNOWN INDICATION
     Dosage: 100/25 MG , 1 TAB OF 11 PM AND 1 TAB AT 4 AM (IN THE MORNING)
     Route: 048

REACTIONS (4)
  - Death [Fatal]
  - Pneumonia aspiration [Fatal]
  - Parkinson^s disease [Fatal]
  - Off label use [Fatal]

NARRATIVE: CASE EVENT DATE: 20210411
